FAERS Safety Report 18878610 (Version 1)
Quarter: 2021Q1

REPORT INFORMATION
  Report Type: Spontaneous
  Country: US (occurrence: US)
  Receive Date: 20210210
  Receipt Date: 20210210
  Transmission Date: 20210420
  Serious: Yes (Hospitalization, Other)
  Sender: FDA-Public Use
  Company Number: None

PATIENT
  Age: 76 Year
  Sex: Male
  Weight: 135.62 kg

DRUGS (2)
  1. TORSEMIDE (TORSEMIDE 20MG TAB) [Suspect]
     Active Substance: TORSEMIDE
     Indication: CARDIAC OPERATION
     Route: 048
     Dates: start: 20201106
  2. METOLAZONE (METOLAZONE 2.5MG TAB) [Suspect]
     Active Substance: METOLAZONE
     Indication: CARDIAC FAILURE CONGESTIVE
     Dates: start: 20201106, end: 20201108

REACTIONS (6)
  - Fall [None]
  - Cardiac failure [None]
  - Dizziness [None]
  - Azotaemia [None]
  - Hypovolaemia [None]
  - Acute kidney injury [None]

NARRATIVE: CASE EVENT DATE: 20201109
